FAERS Safety Report 10701055 (Version 1)
Quarter: 2014Q4

REPORT INFORMATION
  Report Type: Spontaneous
  Country: GB (occurrence: None)
  Receive Date: 20141229
  Receipt Date: 20141229
  Transmission Date: 20150529
  Serious: Yes (Hospitalization)
  Sender: FDA-Public Use
  Company Number: 2014-21083

PATIENT
  Age: 77 Year
  Sex: Female

DRUGS (12)
  1. FUROSEMIDE (FUROSEMIDE) [Concomitant]
     Active Substance: FUROSEMIDE
  2. NYSTAN (NYSTATIN) [Concomitant]
  3. OMEPRAZOLE (OMEPRAZOLE) [Concomitant]
     Active Substance: OMEPRAZOLE
  4. CYCLIZINE (CYCLIZINE) [Concomitant]
  5. LACTULOSE (LACTULOSE) [Concomitant]
     Active Substance: LACTULOSE
  6. PARACETAMOL (PARACETAMOL) [Concomitant]
     Active Substance: ACETAMINOPHEN
  7. CIPROFLOXACIN (CIPROFLOXACIN) [Concomitant]
     Active Substance: CIPROFLOXACIN
  8. TIOTROPIUM BROMIDE (TIOTROPIUM BROMIDE) [Concomitant]
     Active Substance: TIOTROPIUM BROMIDE
  9. LEVOTHYROXINE (LEVOTHYROXINE) [Concomitant]
     Active Substance: LEVOTHYROXINE
  10. SALBUTAMOL (SALBUTAMOL) [Concomitant]
     Active Substance: ALBUTEROL
  11. ROPINIROLE. [Suspect]
     Active Substance: ROPINIROLE
     Indication: RESTLESS LEGS SYNDROME
     Dosage: 4 MG, UNK, ORAL
     Route: 048
  12. BISACODYL (BISACODYL) [Concomitant]
     Active Substance: BISACODYL

REACTIONS (1)
  - Choreoathetosis [None]
